FAERS Safety Report 10955596 (Version 2)
Quarter: 2015Q2

REPORT INFORMATION
  Report Type: Spontaneous
  Country: DE (occurrence: DE)
  Receive Date: 20150326
  Receipt Date: 20150422
  Transmission Date: 20150821
  Serious: Yes (Death, Congenital Anomaly, Other)
  Sender: FDA-Public Use
  Company Number: DE-AUROBINDO-AUR-APL-2015-02531

PATIENT
  Age: 1 Day
  Sex: Male
  Weight: .45 kg

DRUGS (6)
  1. SETRALINE 100MG [Suspect]
     Active Substance: SERTRALINE HYDROCHLORIDE
     Indication: DEPRESSION
     Dosage: 100 MG, DAILY
     Route: 064
     Dates: start: 20140125, end: 20140716
  2. CELESTAN                           /00008501/ [Concomitant]
     Indication: MATERNAL THERAPY TO ENHANCE FOETAL LUNG MATURITY
     Dosage: UNK
     Route: 064
  3. SEROQUEL [Suspect]
     Active Substance: QUETIAPINE FUMARATE
     Indication: DEPRESSION
     Dosage: 100 MG, DAILY
     Route: 064
     Dates: start: 20140125, end: 20140716
  4. PRESINOL [Concomitant]
     Active Substance: METHYLDOPA
     Indication: HYPERTENSION
     Dosage: 2000 MG, DAILY (4X500 MG/DAY)
     Route: 064
     Dates: start: 20140125, end: 20140709
  5. LORAZEPAM. [Concomitant]
     Active Substance: LORAZEPAM
     Indication: DEPRESSION
     Dosage: 1.25 MG, DAILY
     Route: 064
  6. DIAZEPAM. [Concomitant]
     Active Substance: DIAZEPAM
     Indication: DEPRESSION
     Dosage: 10 MG, DAILY
     Route: 064
     Dates: start: 20140619, end: 20140709

REACTIONS (11)
  - Congenital pulmonary valve atresia [Fatal]
  - Foetal growth restriction [Unknown]
  - Small for dates baby [Not Recovered/Not Resolved]
  - Atrial septal defect [Unknown]
  - Premature baby [Unknown]
  - Cardiogenic shock [Fatal]
  - Pulmonary hypertension [Fatal]
  - Patent ductus arteriosus [Not Recovered/Not Resolved]
  - Foetal exposure during pregnancy [Unknown]
  - Right ventricular failure [Fatal]
  - Ventricular septal defect [Not Recovered/Not Resolved]

NARRATIVE: CASE EVENT DATE: 20140716
